FAERS Safety Report 4821895-3 (Version None)
Quarter: 2005Q4

REPORT INFORMATION
  Report Type: 
  Country: None (occurrence: None)
  Receive Date: 20051107
  Receipt Date: 20051027
  Transmission Date: 20060501
  Serious: Yes (Other)
  Sender: FDA-Public Use
  Company Number: US-ROCHE-423043

PATIENT
  Sex: Female

DRUGS (1)
  1. PEGASYS [Suspect]
     Indication: HEPATITIS C
     Route: 058

REACTIONS (4)
  - ARTHRITIS [None]
  - CARPAL TUNNEL SYNDROME [None]
  - LUPUS-LIKE SYNDROME [None]
  - RASH [None]
